FAERS Safety Report 21087955 (Version 1)
Quarter: 2022Q3

REPORT INFORMATION
  Report Type: Spontaneous
  Country: GB (occurrence: GB)
  Receive Date: 20220715
  Receipt Date: 20220715
  Transmission Date: 20221027
  Serious: Yes (Other)
  Sender: FDA-Public Use
  Company Number: None

PATIENT
  Age: 55 Year
  Sex: Female
  Weight: 72 kg

DRUGS (17)
  1. MONTELUKAST [Suspect]
     Active Substance: MONTELUKAST SODIUM
     Indication: Product used for unknown indication
     Dosage: TAKE ONE AT NIGHT;TABLET (UNCOATED, ORAL)
     Route: 065
     Dates: start: 20220425, end: 20220629
  2. FLUTICASONE FUROATE [Concomitant]
     Active Substance: FLUTICASONE FUROATE
     Indication: Product used for unknown indication
     Dosage: ONE SPRAY TWICE DAILY
     Route: 065
     Dates: start: 20220601, end: 20220629
  3. CARBOMER 980 [Concomitant]
     Active Substance: CARBOMER HOMOPOLYMER TYPE C (ALLYL PENTAERYTHRITOL CROSSLINKED)
     Indication: Product used for unknown indication
     Dosage: USE IN THE RIGHT EYE AT NIGHT
     Route: 065
     Dates: start: 20191011
  4. CARBOXYMETHYLCELLULOSE SODIUM [Concomitant]
     Active Substance: CARBOXYMETHYLCELLULOSE SODIUM
     Indication: Product used for unknown indication
     Dosage: INSTIL 1 DROP AS DIRECTED FOUR TIMES DAILY IN...
     Route: 065
     Dates: start: 20191011
  5. CLONAZEPAM [Concomitant]
     Active Substance: CLONAZEPAM
     Indication: Product used for unknown indication
     Dosage: TAKE ONE BD
     Route: 065
     Dates: start: 20220105
  6. HYDROCORTISONE [Concomitant]
     Active Substance: HYDROCORTISONE
     Indication: Product used for unknown indication
     Dosage: USE TWICE DAILY ON AFFECTED AREAS
     Route: 065
     Dates: start: 20220531, end: 20220628
  7. LOPERAMIDE [Concomitant]
     Active Substance: LOPERAMIDE
     Indication: Product used for unknown indication
     Dosage: 1 TO BE TAKEN FOUR TIMES DAILY
     Route: 065
     Dates: start: 20220628
  8. MELATONIN [Concomitant]
     Active Substance: MELATONIN
     Indication: Product used for unknown indication
     Dosage: TAKE ONE AT NIGHT
     Route: 065
     Dates: start: 20220517
  9. MIRTAZAPINE [Concomitant]
     Active Substance: MIRTAZAPINE
     Indication: Product used for unknown indication
     Dosage: ONE TABLET AT NIGHT AS PER DR BENCH (PSYCHIATRY.
     Route: 065
     Dates: start: 20220120
  10. OLOPATADINE [Concomitant]
     Active Substance: OLOPATADINE
     Indication: Product used for unknown indication
     Dosage: ONE DROP TWICE DAILY
     Route: 065
     Dates: start: 20220529
  11. OMEPRAZOLE [Concomitant]
     Active Substance: OMEPRAZOLE
     Indication: Product used for unknown indication
     Dosage: TAKE ONE DAILY
     Route: 065
     Dates: start: 20211215
  12. ALBUTEROL [Concomitant]
     Active Substance: ALBUTEROL
     Indication: Asthma
     Dosage: 2 PUFFS WHEN REQUIRED TO RELIEVE ASTHMA SYMTPOMS
     Route: 065
     Dates: start: 20220525
  13. FLUTICASONE PROPIONATE\SALMETEROL XINAFOATE [Concomitant]
     Active Substance: FLUTICASONE PROPIONATE\SALMETEROL XINAFOATE
     Indication: Product used for unknown indication
     Dosage: INHALE 2 PUFFS SLOW AND STEADY, 2 DAILY V...
     Route: 055
     Dates: start: 20220316, end: 20220421
  14. SODIUM ALGINATE [Concomitant]
     Active Substance: SODIUM ALGINATE
     Indication: Product used for unknown indication
     Dosage: 5ML TO 10 ML OR 1 TO 2 TABLETS AFTER MEALS
     Route: 065
     Dates: start: 20220621
  15. BECLOMETHASONE DIPROPIONATE\FORMOTEROL FUMARATE\GLYCOPYRROLATE [Concomitant]
     Active Substance: BECLOMETHASONE DIPROPIONATE\FORMOTEROL FUMARATE\GLYCOPYRROLATE
     Indication: Product used for unknown indication
     Dosage: INHALE 2 PUFFS SLOW AND STEADY, 2 DAILY V...
     Route: 055
     Dates: start: 20220421
  16. VENTOLIN [Concomitant]
     Active Substance: ALBUTEROL SULFATE
     Indication: Asthma
     Dosage: 2 PUFFS WHEN REQUIRED TO RELIEVE ASTHMA SYMTPOMS
     Route: 065
     Dates: start: 20220309, end: 20220525
  17. ZOPICLONE [Concomitant]
     Active Substance: ZOPICLONE
     Indication: Product used for unknown indication
     Dosage: TAKE 1 AT NIGHT WHEN REQUIRED. PLEASE ONLY IS...
     Route: 065
     Dates: start: 20220307

REACTIONS (1)
  - Throat tightness [Recovered/Resolved]

NARRATIVE: CASE EVENT DATE: 20220630
